FAERS Safety Report 6509527-X (Version None)
Quarter: 2009Q4

REPORT INFORMATION
  Report Type: 
  Country: None (occurrence: None)
  Receive Date: 20091217
  Receipt Date: 20091201
  Transmission Date: 20100525
  Serious: Yes (Hospitalization)
  Sender: FDA-Public Use
  Company Number: 2009SA009079

PATIENT
  Age: 74 Year
  Sex: Female

DRUGS (14)
  1. FLUDARABINE PHOSPHATE [Suspect]
     Indication: CHRONIC LYMPHOCYTIC LEUKAEMIA
     Dosage: 40 MILLIGRAM(S);DAILY;ORAL
     Route: 048
     Dates: start: 20081119, end: 20081121
  2. RITUXAN [Suspect]
     Indication: CHRONIC LYMPHOCYTIC LEUKAEMIA
     Dosage: 600 MILLIGRAM(S);INTRAVENOUS (NOT OTHERWISE SPECIFIED)
     Route: 042
     Dates: start: 20081117
  3. CYCLOPHOSPHAMIDE [Suspect]
     Indication: CHRONIC LYMPHOCYTIC LEUKAEMIA
     Dosage: 250 MILLIGRAM(S);DAILY;ORAL
     Route: 048
     Dates: start: 20081119
  4. ALLOPURINOL [Concomitant]
  5. SIMVASTATIN [Concomitant]
  6. SOMAC [Concomitant]
  7. VALTREX [Concomitant]
  8. BACTRIM DS [Concomitant]
  9. DEXAMETHASONE [Concomitant]
  10. INTRAGAM [Concomitant]
  11. PREDNISOLONE [Concomitant]
  12. GLYCERYL TRINITRATE [Concomitant]
  13. PLATELETS [Concomitant]
  14. PREV MEDS [Concomitant]

REACTIONS (8)
  - ANGINA PECTORIS [None]
  - BACK PAIN [None]
  - CONDITION AGGRAVATED [None]
  - ELECTROCARDIOGRAM ST SEGMENT DEPRESSION [None]
  - HAEMORRHAGE [None]
  - INCREASED TENDENCY TO BRUISE [None]
  - MYOCARDIAL INFARCTION [None]
  - THROMBOCYTOPENIA [None]
